FAERS Safety Report 16258180 (Version 2)
Quarter: 2019Q2

REPORT INFORMATION
  Report Type: Report from Study
  Country: JP (occurrence: JP)
  Receive Date: 20190430
  Receipt Date: 20190530
  Transmission Date: 20190711
  Serious: Yes (Hospitalization)
  Sender: FDA-Public Use
  Company Number: JP-PFIZER INC-2019171088

PATIENT
  Age: 70 Year
  Sex: Female
  Weight: 62 kg

DRUGS (6)
  1. HUMALOG [Concomitant]
     Active Substance: INSULIN LISPRO
     Indication: DIABETES MELLITUS
     Dosage: INSULIN LISPRO(GENETICAL RECOMBINATION
     Route: 065
  2. IBRANCE [Suspect]
     Active Substance: PALBOCICLIB
     Indication: BREAST CANCER METASTATIC
     Dosage: 125 MG, UNK
     Route: 048
     Dates: start: 20190308, end: 20190320
  3. MAGNESIUM OXIDE. [Concomitant]
     Active Substance: MAGNESIUM OXIDE
     Indication: CONSTIPATION
     Dosage: 250 MG, 3X/DAY AFTER MEALS
     Route: 048
     Dates: start: 20160615
  4. FASLODEX [Suspect]
     Active Substance: FULVESTRANT
     Indication: BREAST CANCER FEMALE
     Dosage: 500 MG, INJECTION
     Route: 030
     Dates: start: 20160615
  5. VITAMIN E [Concomitant]
     Active Substance: .ALPHA.-TOCOPHEROL
     Indication: ARTHRITIS
     Dosage: 50 MG, 3X/DAY AFTER MEALS
     Route: 048
     Dates: start: 20161102
  6. FERROMIA [Concomitant]
     Active Substance: SODIUM FERROUS CITRATE
     Indication: IRON DEFICIENCY ANAEMIA
     Dosage: 50 MG, 2X/DAY AFTER BREAKFAST AND DINNER
     Route: 048
     Dates: start: 20181115

REACTIONS (4)
  - Dyspnoea exertional [Recovering/Resolving]
  - Neutrophil count decreased [Recovering/Resolving]
  - Anaemia [Recovered/Resolved]
  - Platelet count decreased [Recovering/Resolving]

NARRATIVE: CASE EVENT DATE: 20180328
